FAERS Safety Report 6348282-3 (Version None)
Quarter: 2009Q3

REPORT INFORMATION
  Report Type: 
  Country: None (occurrence: None)
  Receive Date: 20090908
  Receipt Date: 20090714
  Transmission Date: 20100115
  Serious: Yes (Other)
  Sender: FDA-Public Use
  Company Number: 6-20090714

PATIENT

DRUGS (1)
  1. CHLORHEXIDINE GLUCONATE [Suspect]
     Indication: BACTERIAL INFECTION
     Dosage: ORAL MAY-JULY 2009
     Route: 048
     Dates: start: 20090501

REACTIONS (1)
  - UNEVALUABLE EVENT [None]
